FAERS Safety Report 17453102 (Version 2)
Quarter: 2021Q1

REPORT INFORMATION
  Report Type: Spontaneous
  Country: US (occurrence: US)
  Receive Date: 20200224
  Receipt Date: 20210222
  Transmission Date: 20210419
  Serious: Yes (Hospitalization)
  Sender: FDA-Public Use
  Company Number: US-STASON PHARMACEUTICALS, INC.-2080838

PATIENT
  Age: 3 Year
  Sex: Male
  Weight: 21.4 kg

DRUGS (1)
  1. MERCAPTOPURINE. [Suspect]
     Active Substance: MERCAPTOPURINE

REACTIONS (4)
  - Aspartate aminotransferase increased [Recovering/Resolving]
  - Anaemia [Recovered/Resolved]
  - Dehydration [Recovering/Resolving]
  - Alanine aminotransferase increased [Recovering/Resolving]
